FAERS Safety Report 7954382-4 (Version None)
Quarter: 2011Q4

REPORT INFORMATION
  Report Type: 
  Country: None (occurrence: None)
  Receive Date: 20111202
  Receipt Date: 20111129
  Transmission Date: 20120403
  Serious: Yes (Other)
  Sender: FDA-Public Use
  Company Number: NL-PFIZER INC-2011286158

PATIENT
  Age: 95 Year
  Sex: Female
  Weight: 58 kg

DRUGS (9)
  1. CAPTOPRIL [Concomitant]
     Dosage: 25 MG, 2X/DAY
     Dates: start: 20101223
  2. CIPROFLOXACIN [Concomitant]
     Dosage: 500 MG, 2X/DAY
     Dates: start: 20111013, end: 20111022
  3. LANOXIN [Concomitant]
     Dosage: 62.5 UG, UNK
     Dates: start: 20091007
  4. ACENOCOUMAROL [Interacting]
     Indication: ATRIAL FIBRILLATION
     Dosage: UNK
     Dates: start: 20091007
  5. COLCHICINE [Concomitant]
     Dosage: 0.5 MG, UNK
     Dates: start: 20091007
  6. ATROVENT [Concomitant]
     Dosage: 40 UG, 3X/DAY
     Dates: start: 20100118
  7. AZITHROMYCIN [Suspect]
     Indication: RESPIRATORY TRACT INFECTION
     Dosage: 300 MG, UNK
     Dates: start: 20111020, end: 20111024
  8. VENTOLIN [Concomitant]
     Dosage: 2 DF, 3X/DAY
     Dates: start: 20091029
  9. MONO-CEDOCARD RETARD [Concomitant]
     Dosage: 25 MG, 1X/DAY
     Dates: start: 20110930

REACTIONS (2)
  - POTENTIATING DRUG INTERACTION [None]
  - INTERNATIONAL NORMALISED RATIO INCREASED [None]
